FAERS Safety Report 22212486 (Version 1)
Quarter: 2023Q2

REPORT INFORMATION
  Report Type: Spontaneous
  Country: US (occurrence: US)
  Receive Date: 20230414
  Receipt Date: 20230414
  Transmission Date: 20230722
  Serious: No
  Sender: FDA-Public Use
  Company Number: US-ABBVIE-4327950

PATIENT
  Sex: Female

DRUGS (1)
  1. HUMIRA [Suspect]
     Active Substance: ADALIMUMAB
     Indication: Product used for unknown indication
     Route: 058
     Dates: start: 2020, end: 2023

REACTIONS (6)
  - Maternal exposure during pregnancy [Unknown]
  - Sinusitis [Unknown]
  - Psoriasis [Unknown]
  - Furuncle [Unknown]
  - Live birth [Unknown]
  - Mastitis postpartum [Unknown]
